FAERS Safety Report 17024380 (Version 2)
Quarter: 2020Q4

REPORT INFORMATION
  Report Type: Spontaneous
  Country: US (occurrence: US)
  Receive Date: 20191113
  Receipt Date: 20201222
  Transmission Date: 20210113
  Serious: Yes (Other)
  Sender: FDA-Public Use
  Company Number: US-SUNOVION-2019SUN004862

PATIENT
  Age: 58 Year
  Sex: Female

DRUGS (1)
  1. LONHALA MAGNAIR [Suspect]
     Active Substance: GLYCOPYRROLATE
     Dosage: 25 ?G, BID (60/30)
     Route: 055

REACTIONS (14)
  - Raynaud^s phenomenon [Unknown]
  - Temperature intolerance [Unknown]
  - Surgery [Unknown]
  - Device leakage [Unknown]
  - Neoplasm malignant [Unknown]
  - Pulmonary mass [Unknown]
  - Device issue [Unknown]
  - Gait disturbance [Unknown]
  - Mastectomy [Unknown]
  - Pulmonary resection [Unknown]
  - Periodontal disease [Unknown]
  - Vocal cord disorder [Unknown]
  - Device delivery system issue [Unknown]
  - Device power source issue [Unknown]
